FAERS Safety Report 12065762 (Version 1)
Quarter: 2016Q1

REPORT INFORMATION
  Report Type: Spontaneous
  Country: US (occurrence: None)
  Receive Date: 20160210
  Receipt Date: 20160210
  Transmission Date: 20160526
  Serious: Yes (Other)
  Sender: FDA-Public Use
  Company Number: None

PATIENT
  Age: 72 Year
  Sex: Female
  Weight: 74.84 kg

DRUGS (16)
  1. CARVEDILOL. [Concomitant]
     Active Substance: CARVEDILOL
  2. SINGULAIR [Concomitant]
     Active Substance: MONTELUKAST SODIUM
  3. CENTRUM SILVER [Concomitant]
     Active Substance: MINERALS\VITAMINS
  4. QUINAPRIL [Suspect]
     Active Substance: QUINAPRIL\QUINAPRIL HYDROCHLORIDE
     Indication: CARDIAC DISORDER
     Dosage: 10 MG 1 PILL BEDTIME BY MOUTH
     Route: 048
     Dates: end: 20160115
  5. ACCUPRIL [Suspect]
     Active Substance: QUINAPRIL HYDROCHLORIDE
  6. LASIX [Concomitant]
     Active Substance: FUROSEMIDE
  7. SPIRIVA [Concomitant]
     Active Substance: TIOTROPIUM BROMIDE MONOHYDRATE
  8. IPRATROPIUM BROMIDE + ALBUTEROL SULFATE [Concomitant]
     Active Substance: ALBUTEROL SULFATE\IPRATROPIUM BROMIDE
  9. COZAAR (LOSARTAN) [Concomitant]
  10. AZELASTINE HCL [Concomitant]
     Active Substance: AZELASTINE HYDROCHLORIDE
  11. CITRACAL (CALCIUM CITRATE) [Concomitant]
     Active Substance: CALCIUM CITRATE
  12. OXYGEN. [Concomitant]
     Active Substance: OXYGEN
  13. LEVOTHYROXINE NA (SYNTHROID) [Concomitant]
  14. SYMBICORT [Concomitant]
     Active Substance: BUDESONIDE\FORMOTEROL FUMARATE DIHYDRATE
  15. ASPIRIN. [Concomitant]
     Active Substance: ASPIRIN
  16. KLOR-CON [Concomitant]
     Active Substance: POTASSIUM CHLORIDE

REACTIONS (2)
  - Feeling abnormal [None]
  - Cough [None]

NARRATIVE: CASE EVENT DATE: 201509
